FAERS Safety Report 20440407 (Version 1)
Quarter: 2022Q1

REPORT INFORMATION
  Report Type: Report from Study
  Country: FR (occurrence: FR)
  Receive Date: 20220207
  Receipt Date: 20220207
  Transmission Date: 20220423
  Serious: Yes (Hospitalization)
  Sender: FDA-Public Use
  Company Number: FR-CELGENE-FRA-20220200474

PATIENT
  Age: 94 Year
  Sex: Female
  Weight: 55 kg

DRUGS (2)
  1. ENASIDENIB [Suspect]
     Active Substance: ENASIDENIB
     Indication: Myelodysplastic syndrome
     Dosage: 100
     Route: 048
     Dates: start: 20211206
  2. ENASIDENIB [Suspect]
     Active Substance: ENASIDENIB
     Dosage: 100
     Route: 048
     Dates: start: 20220129

REACTIONS (3)
  - COVID-19 pneumonia [Not Recovered/Not Resolved]
  - Fall [Not Recovered/Not Resolved]
  - Asthenia [Not Recovered/Not Resolved]

NARRATIVE: CASE EVENT DATE: 20220129
